FAERS Safety Report 25004688 (Version 2)
Quarter: 2025Q1

REPORT INFORMATION
  Report Type: Spontaneous
  Country: VN (occurrence: VN)
  Receive Date: 20250224
  Receipt Date: 20250226
  Transmission Date: 20250409
  Serious: Yes (Other)
  Sender: ASTELLAS
  Company Number: VN-ASTELLAS-2025-AER-010132

PATIENT
  Age: 49 Year
  Sex: Male

DRUGS (5)
  1. TACROLIMUS [Suspect]
     Active Substance: TACROLIMUS
     Indication: Renal transplant
     Route: 050
     Dates: start: 201108, end: 202309
  2. TACROLIMUS [Suspect]
     Active Substance: TACROLIMUS
     Route: 050
     Dates: start: 202409
  3. MYCOPHENOLATE MOFETIL [Concomitant]
     Active Substance: MYCOPHENOLATE MOFETIL
     Indication: Renal transplant
     Route: 065
     Dates: start: 201108, end: 202309
  4. PREDNISONE [Concomitant]
     Active Substance: PREDNISONE
     Indication: Renal transplant
     Route: 065
     Dates: start: 201108, end: 202309
  5. PREDNISONE [Concomitant]
     Active Substance: PREDNISONE
     Route: 065
     Dates: start: 202409

REACTIONS (5)
  - IgA nephropathy [Unknown]
  - Transplant rejection [Unknown]
  - Complications of transplanted kidney [Recovering/Resolving]
  - Sarcoma [Recovering/Resolving]
  - Renal transplant failure [Unknown]

NARRATIVE: CASE EVENT DATE: 20180701
